FAERS Safety Report 16429760 (Version 4)
Quarter: 2021Q3

REPORT INFORMATION
  Report Type: Spontaneous
  Country: US (occurrence: US)
  Receive Date: 20190614
  Receipt Date: 20210729
  Transmission Date: 20211014
  Serious: Yes (Other)
  Sender: FDA-Public Use
  Company Number: US-GILEAD-2019-0412935

PATIENT
  Age: 61 Year
  Sex: Male

DRUGS (37)
  1. TIVICAY [Concomitant]
     Active Substance: DOLUTEGRAVIR SODIUM
  2. KALETRA [Concomitant]
     Active Substance: LOPINAVIR\RITONAVIR
  3. BYSTOLIC [Concomitant]
     Active Substance: NEBIVOLOL HYDROCHLORIDE
  4. ATRIPLA [Suspect]
     Active Substance: EFAVIRENZ\EMTRICITABINE\TENOFOVIR DISOPROXIL FUMARATE
     Indication: HIV INFECTION
     Dosage: UNK
     Route: 048
     Dates: start: 200711, end: 201406
  5. DESCOVY [Concomitant]
     Active Substance: EMTRICITABINE\TENOFOVIR ALAFENAMIDE FUMARATE
  6. HYDROCORT [HYDROCORTISONE ACETATE] [Concomitant]
     Active Substance: HYDROCORTISONE ACETATE
  7. LIPITOR [Concomitant]
     Active Substance: ATORVASTATIN CALCIUM
  8. GOLYTELY [Concomitant]
     Active Substance: POLYETHYLENE GLYCOL 3350\POTASSIUM CHLORIDE\SODIUM BICARBONATE\SODIUM CHLORIDE\SODIUM SULFATE
  9. NIFEDIPINE. [Concomitant]
     Active Substance: NIFEDIPINE
  10. AZITHROMYCIN ANHYDROUS. [Concomitant]
     Active Substance: AZITHROMYCIN ANHYDROUS
  11. LEVAQUIN [Concomitant]
     Active Substance: LEVOFLOXACIN
  12. LISINOPRIL. [Concomitant]
     Active Substance: LISINOPRIL
  13. CEPHALEXIN [CEFALEXIN] [Concomitant]
     Active Substance: CEPHALEXIN
  14. GABAPENTIN. [Concomitant]
     Active Substance: GABAPENTIN
  15. ABACAVIR SULFATE. [Concomitant]
     Active Substance: ABACAVIR SULFATE
  16. AMOXICILLIN;CLAVULANATE POTASSIUM [Concomitant]
     Active Substance: AMOXICILLIN\CLAVULANATE POTASSIUM
  17. SERTRALINE [Concomitant]
     Active Substance: SERTRALINE HYDROCHLORIDE
  18. AMOXICILLIN. [Concomitant]
     Active Substance: AMOXICILLIN
  19. HYDROCODONE BITARTRATE AND ACETAMINOPHEN [Concomitant]
     Active Substance: ACETAMINOPHEN\HYDROCODONE BITARTRATE
  20. BENZONATATE. [Concomitant]
     Active Substance: BENZONATATE
  21. HYDROXYZINE HCL [Concomitant]
     Active Substance: HYDROXYZINE HYDROCHLORIDE
  22. ATENOLOL. [Concomitant]
     Active Substance: ATENOLOL
  23. IBUPROFEN. [Concomitant]
     Active Substance: IBUPROFEN
  24. LOSARTAN POTASSIUM. [Concomitant]
     Active Substance: LOSARTAN POTASSIUM
  25. MYRBETRIQ [Concomitant]
     Active Substance: MIRABEGRON
  26. EMTRIVA [Concomitant]
     Active Substance: EMTRICITABINE
  27. PRAVASTATIN. [Concomitant]
     Active Substance: PRAVASTATIN
  28. ENOXAPARIN [Concomitant]
     Active Substance: ENOXAPARIN
  29. EPZICOM [Concomitant]
     Active Substance: ABACAVIR SULFATE\LAMIVUDINE
  30. APAP;CODEINE [Concomitant]
  31. SMZ?TMP [Concomitant]
     Active Substance: SULFAMETHOXAZOLE\TRIMETHOPRIM
  32. SIMVASTATIN. [Concomitant]
     Active Substance: SIMVASTATIN
  33. ZOLPIDEM [Concomitant]
     Active Substance: ZOLPIDEM TARTRATE
  34. COMBIVIR [Concomitant]
     Active Substance: LAMIVUDINE\ZIDOVUDINE
  35. PAROXETINE. [Concomitant]
     Active Substance: PAROXETINE
  36. ACYCLOVIR [ACICLOVIR] [Concomitant]
     Active Substance: ACYCLOVIR
  37. VITAMIN D NOS [Concomitant]
     Active Substance: VITAMIN D NOS

REACTIONS (12)
  - Economic problem [Not Recovered/Not Resolved]
  - Osteoporosis [Unknown]
  - Anhedonia [Not Recovered/Not Resolved]
  - Pain [Not Recovered/Not Resolved]
  - Anxiety [Not Recovered/Not Resolved]
  - Osteopenia [Unknown]
  - Bone density decreased [Not Recovered/Not Resolved]
  - Multiple fractures [Recovered/Resolved]
  - Tooth loss [Not Recovered/Not Resolved]
  - Emotional distress [Not Recovered/Not Resolved]
  - Fracture [Unknown]
  - Chronic kidney disease [Not Recovered/Not Resolved]

NARRATIVE: CASE EVENT DATE: 2010
